FAERS Safety Report 9079319 (Version 3)
Quarter: 2013Q3

REPORT INFORMATION
  Report Type: Report from Study
  Country: GB (occurrence: GB)
  Receive Date: 20130130
  Receipt Date: 20130717
  Transmission Date: 20140515
  Serious: Yes (Hospitalization)
  Sender: FDA-Public Use
  Company Number: GB-ROCHE-1183020

PATIENT
  Age: 58 Year
  Sex: Male
  Weight: 69.9 kg

DRUGS (6)
  1. BEVACIZUMAB [Suspect]
     Indication: PRODUCT USED FOR UNKNOWN INDICATION
     Route: 042
     Dates: start: 20121002
  2. BEVACIZUMAB [Suspect]
     Route: 042
     Dates: start: 20121002
  3. OMEPRAZOLE [Concomitant]
     Indication: DYSPEPSIA
     Route: 048
  4. OMEPRAZOLE [Concomitant]
     Route: 048
  5. AMLODIPINE [Concomitant]
     Indication: HYPERTENSION
     Route: 065
     Dates: start: 201209
  6. AMLODIPINE [Concomitant]
     Route: 048

REACTIONS (4)
  - Chest pain [Not Recovered/Not Resolved]
  - Infection [Not Recovered/Not Resolved]
  - Chest pain [Not Recovered/Not Resolved]
  - Infection [Not Recovered/Not Resolved]
